FAERS Safety Report 5022786-8 (Version None)
Quarter: 2006Q2

REPORT INFORMATION
  Report Type: 
  Country: None (occurrence: None)
  Receive Date: 20060426
  Receipt Date: 20060120
  Transmission Date: 20061013
  Serious: Yes (Other)
  Sender: FDA-Public Use
  Company Number: 2005155166

PATIENT
  Age: 40 Year
  Sex: Female

DRUGS (8)
  1. LYRICA [Suspect]
     Indication: ILL-DEFINED DISORDER
     Dosage: 150 MG (75 MG, 2 IN 1 D)
  2. LORTAB [Concomitant]
  3. MICARDIS [Concomitant]
  4. CYMBALTA [Concomitant]
  5. GLUCOPHAGE [Concomitant]
  6. SKELAXIN [Concomitant]
  7. VOLTAREN [Concomitant]
  8. ZOCOR [Concomitant]

REACTIONS (1)
  - ABDOMINAL DISTENSION [None]
